FAERS Safety Report 21974728 (Version 1)
Quarter: 2023Q1

REPORT INFORMATION
  Report Type: Spontaneous
  Country: US (occurrence: None)
  Receive Date: 20230208
  Receipt Date: 20230208
  Transmission Date: 20230417
  Serious: No
  Sender: FDA-Public Use
  Company Number: None

PATIENT
  Age: 33 Year
  Sex: Male
  Weight: 96.75 kg

DRUGS (1)
  1. TEPEZZA [Suspect]
     Active Substance: TEPROTUMUMAB-TRBW
     Dates: start: 20220803, end: 20230117

REACTIONS (5)
  - Alopecia [None]
  - Alopecia [None]
  - Nail disorder [None]
  - Onychoclasis [None]
  - Alopecia [None]

NARRATIVE: CASE EVENT DATE: 20221001
